FAERS Safety Report 13939815 (Version 4)
Quarter: 2017Q4

REPORT INFORMATION
  Report Type: Spontaneous
  Country: GB (occurrence: GB)
  Receive Date: 20170906
  Receipt Date: 20171229
  Transmission Date: 20180320
  Serious: Yes (Death, Hospitalization, Other)
  Sender: FDA-Public Use
  Company Number: GB-RECORDATI RARE DISEASES-GB-R13005-17-00199

PATIENT
  Age: 7 Year
  Sex: Male
  Weight: 23 kg

DRUGS (4)
  1. XALKORI [Suspect]
     Active Substance: CRIZOTINIB
     Indication: EPITHELIOID SARCOMA METASTATIC
     Route: 048
     Dates: start: 20170811
  2. VINCRISTINE [Suspect]
     Active Substance: VINCRISTINE
     Indication: EPITHELIOID SARCOMA
     Route: 065
     Dates: start: 20170728
  3. DACTINOMYCIN [Suspect]
     Active Substance: DACTINOMYCIN
     Indication: EPITHELIOID SARCOMA
     Route: 065
     Dates: start: 20170728
  4. CYCLOPHOSPHAMIDE. [Suspect]
     Active Substance: CYCLOPHOSPHAMIDE
     Indication: EPITHELIOID SARCOMA
     Route: 065
     Dates: start: 20170728

REACTIONS (7)
  - Multiple organ dysfunction syndrome [Fatal]
  - Neoplasm progression [Unknown]
  - Systemic candida [Unknown]
  - Hypoxia [Unknown]
  - Off label use [Unknown]
  - Acidosis [Unknown]
  - Sepsis [Unknown]

NARRATIVE: CASE EVENT DATE: 20170809
